FAERS Safety Report 8545702-0 (Version None)
Quarter: 2012Q3

REPORT INFORMATION
  Report Type: 
  Country: None (occurrence: None)
  Receive Date: 20120727
  Receipt Date: 20120725
  Transmission Date: 20120928
  Serious: Yes (Other)
  Sender: FDA-Public Use
  Company Number: US-ROCHE-1061190

PATIENT
  Sex: Male
  Weight: 77.18 kg

DRUGS (1)
  1. ACCUTANE [Suspect]
     Indication: PRODUCT USED FOR UNKNOWN INDICATION
     Route: 065
     Dates: start: 20040312, end: 20050701

REACTIONS (4)
  - HIP SURGERY [None]
  - INFLAMMATORY BOWEL DISEASE [None]
  - LIVER INJURY [None]
  - TOOTH DISORDER [None]
